FAERS Safety Report 14504108 (Version 1)
Quarter: 2018Q1

REPORT INFORMATION
  Report Type: Spontaneous
  Country: US (occurrence: US)
  Receive Date: 20180207
  Receipt Date: 20180207
  Transmission Date: 20180509
  Serious: Yes (Death)
  Sender: FDA-Public Use
  Company Number: None

PATIENT
  Age: 73 Year
  Sex: Male

DRUGS (12)
  1. NITROSTAT [Concomitant]
     Active Substance: NITROGLYCERIN
  2. ROSUVASTATIN. [Concomitant]
     Active Substance: ROSUVASTATIN
  3. ESBRIET [Suspect]
     Active Substance: PIRFENIDONE
     Indication: PULMONARY FIBROSIS
     Route: 048
     Dates: start: 20171209, end: 201801
  4. ISOSORBIDE. [Concomitant]
     Active Substance: ISOSORBIDE
  5. CLOPIDOGREL [Concomitant]
     Active Substance: CLOPIDOGREL BISULFATE
  6. COENZYME Q10 [Concomitant]
     Active Substance: UBIDECARENONE
  7. EPLERENONE. [Concomitant]
     Active Substance: EPLERENONE
  8. METOPROLOL. [Concomitant]
     Active Substance: METOPROLOL
  9. RANEXA [Concomitant]
     Active Substance: RANOLAZINE
  10. CHOLECALCIF [Concomitant]
  11. SPIRONOLACT [Concomitant]
     Active Substance: SPIRONOLACTONE
  12. CALCIUM CARB [Concomitant]
     Active Substance: CALCIUM CARBONATE

REACTIONS (1)
  - Death [None]
